FAERS Safety Report 23401411 (Version 1)
Quarter: 2024Q1

REPORT INFORMATION
  Report Type: Spontaneous
  Country: JP (occurrence: JP)
  Receive Date: 20240115
  Receipt Date: 20240115
  Transmission Date: 20240410
  Serious: Yes (Hospitalization, Other)
  Sender: FDA-Public Use
  Company Number: JP-DSJP-DSJ-2023-146963

PATIENT
  Age: 66 Year
  Sex: Female

DRUGS (24)
  1. DENOSUMAB [Suspect]
     Active Substance: DENOSUMAB
     Indication: Metastases to bone
     Dosage: 120 MILLIGRAM, Q4WK
     Route: 058
     Dates: start: 20211101
  2. ENHERTU [Suspect]
     Active Substance: FAM-TRASTUZUMAB DERUXTECAN-NXKI
     Indication: HER2 low breast cancer
     Dosage: 300 MG, ONCE EVERY 3 WK
     Route: 041
     Dates: start: 20231026, end: 20231026
  3. ENHERTU [Suspect]
     Active Substance: FAM-TRASTUZUMAB DERUXTECAN-NXKI
     Dosage: 200 MG, ONCE EVERY 3 WK
     Route: 041
     Dates: start: 202311, end: 202311
  4. ENHERTU [Suspect]
     Active Substance: FAM-TRASTUZUMAB DERUXTECAN-NXKI
     Dosage: 200 MG, ONCE EVERY 3 WK
     Route: 041
     Dates: start: 202312, end: 202312
  5. ENHERTU [Suspect]
     Active Substance: FAM-TRASTUZUMAB DERUXTECAN-NXKI
     Dosage: 200 MG, ONCE EVERY 3 WK
     Route: 041
     Dates: start: 202312, end: 202312
  6. BEVACIZUMAB [Concomitant]
     Active Substance: BEVACIZUMAB
     Indication: Neoplasm
     Dosage: 350MG/DAY
     Route: 065
     Dates: start: 20211104, end: 20220421
  7. DOMPERIDONE [Concomitant]
     Active Substance: DOMPERIDONE
     Indication: Nausea
     Dosage: 10 MILLIGRAM, BID
     Route: 048
     Dates: start: 20230327
  8. MIROGABALIN BESYLATE [Concomitant]
     Active Substance: MIROGABALIN BESYLATE
     Indication: Neuropathy peripheral
     Dosage: 10 MILLIGRAM, BID
     Route: 048
     Dates: start: 20220210
  9. CALCIUM CARBONATE\CHOLECALCIFEROL\MAGNESIUM CARBONATE [Concomitant]
     Active Substance: CALCIUM CARBONATE\CHOLECALCIFEROL\MAGNESIUM CARBONATE
     Indication: Adverse reaction
     Dosage: 2 DOSAGE FORM, QD
     Route: 048
     Dates: start: 20220113
  10. CALCIUM CARBONATE\CHOLECALCIFEROL\MAGNESIUM CARBONATE [Concomitant]
     Active Substance: CALCIUM CARBONATE\CHOLECALCIFEROL\MAGNESIUM CARBONATE
     Indication: Prophylaxis
     Dosage: UNK
  11. CELECOXIB [Concomitant]
     Active Substance: CELECOXIB
     Indication: Back pain
     Dosage: 100 MILLIGRAM, BID
     Route: 048
     Dates: start: 20231009
  12. REBAMIPIDE [Concomitant]
     Active Substance: REBAMIPIDE
     Indication: Gastritis prophylaxis
     Dosage: 100 MILLIGRAM, BID
     Route: 048
     Dates: start: 20231009
  13. DECADRON [Concomitant]
     Active Substance: DEXAMETHASONE
     Indication: Nausea
     Dosage: 4 MILLIGRAM, QD
     Route: 048
     Dates: start: 20231027, end: 20231029
  14. PALONOSETRON [Concomitant]
     Active Substance: PALONOSETRON
     Indication: Nausea
     Dosage: 0.75 MILLIGRAM, QD
     Route: 042
     Dates: start: 20231026, end: 20231026
  15. FOSNETUPITANT CHLORIDE HYDROCHLORIDE [Concomitant]
     Active Substance: FOSNETUPITANT CHLORIDE HYDROCHLORIDE
     Indication: Nausea
     Dosage: UNK UNK, QD
     Route: 042
     Dates: start: 20231026, end: 20231026
  16. PACLITAXEL [Concomitant]
     Active Substance: PACLITAXEL
     Indication: Neoplasm
     Dosage: 90-120MG/DAY, ONCE EVERY 1 WK
     Route: 065
     Dates: start: 20211104, end: 20220421
  17. ABEMACICLIB [Concomitant]
     Active Substance: ABEMACICLIB
     Indication: Neoplasm
     Dosage: 300MG/DAY
     Route: 065
     Dates: start: 20220506, end: 20221006
  18. LETROZOLE [Concomitant]
     Active Substance: LETROZOLE
     Indication: Neoplasm
     Dosage: 2.5MG/DAY
     Route: 065
     Dates: start: 20220506, end: 20221006
  19. ERIBULIN [Concomitant]
     Active Substance: ERIBULIN
     Indication: Neoplasm
     Dosage: 1.6MG/DAY
     Route: 065
     Dates: start: 20221013, end: 20221215
  20. EPIRUBICIN [Concomitant]
     Active Substance: EPIRUBICIN
     Indication: Neoplasm
     Dosage: 110MG/DAY
     Route: 065
     Dates: start: 20230123, end: 20230327
  21. CYCLOPHOSPHAMIDE [Concomitant]
     Active Substance: CYCLOPHOSPHAMIDE
     Indication: Neoplasm
     Dosage: 700MG/DAY
     Route: 065
     Dates: start: 20230123, end: 20230327
  22. OLAPARIB [Concomitant]
     Active Substance: OLAPARIB
     Indication: Neoplasm
     Dosage: 800MG/DAY
     Route: 065
     Dates: start: 20230418, end: 2023
  23. OLAPARIB [Concomitant]
     Active Substance: OLAPARIB
     Dosage: 400MG/DAY
     Route: 065
     Dates: start: 2023, end: 20230930
  24. DEXAMETHASONE SODIUM PHOSPHATE [Concomitant]
     Active Substance: DEXAMETHASONE PHOSPHATE\DEXAMETHASONE SODIUM PHOSPHATE
     Indication: Nausea
     Dosage: 6.6 MILLIGRAM, QD
     Route: 042
     Dates: start: 20231026, end: 20231026

REACTIONS (4)
  - Febrile neutropenia [Recovered/Resolved]
  - Oral candidiasis [Unknown]
  - Nasopharyngitis [Recovered/Resolved]
  - Anaemia [Recovered/Resolved]

NARRATIVE: CASE EVENT DATE: 20230101
